FAERS Safety Report 25721337 (Version 1)
Quarter: 2025Q3

REPORT INFORMATION
  Report Type: Spontaneous
  Country: EU (occurrence: EU)
  Receive Date: 20250825
  Receipt Date: 20250825
  Transmission Date: 20251021
  Serious: Yes (Hospitalization, Other)
  Sender: CHEPLAPHARM
  Company Number: None

PATIENT
  Age: 57 Year
  Sex: Male

DRUGS (1)
  1. OLANZAPINE PAMOATE [Suspect]
     Active Substance: OLANZAPINE PAMOATE
     Dosage: POWDER AND SOLVENT FOR PROLONGED-RELEASE? SUSPENSION FOR INJE; EVERY 4 WEEK?; 405MG INJ PLQ SUS P...
     Route: 030
     Dates: start: 20250804, end: 20250804

REACTIONS (8)
  - Confusional state [Recovering/Resolving]
  - Disorientation [Not Recovered/Not Resolved]
  - Hyperhidrosis [Recovering/Resolving]
  - Communication disorder [Recovering/Resolving]
  - Blood pressure increased [Recovering/Resolving]
  - Heart rate increased [Recovering/Resolving]
  - Somnolence [Recovering/Resolving]
  - Post-injection delirium sedation syndrome [Recovering/Resolving]

NARRATIVE: CASE EVENT DATE: 20250804
